FAERS Safety Report 6638102-1 (Version None)
Quarter: 2010Q1

REPORT INFORMATION
  Report Type: 
  Country: None (occurrence: None)
  Receive Date: 20100301
  Receipt Date: 20090122
  Transmission Date: 20100710
  Serious: Yes (Hospitalization)
  Sender: FDA-Public Use
  Company Number: RB-8595-2009

PATIENT
  Age: 22 Year
  Sex: Female

DRUGS (3)
  1. SUBOXONE [Suspect]
     Indication: DRUG DEPENDENCE
     Dosage: 16 MG SUBLINGUAL, PATIENT TAKES 2 TBLETS DAILY SUBLINGUAL
     Route: 060
     Dates: start: 20081204, end: 20081227
  2. KLONOPIN [Concomitant]
  3. GEODON [Concomitant]

REACTIONS (3)
  - BURNS THIRD DEGREE [None]
  - DRUG EXPOSURE DURING PREGNANCY [None]
  - RESPIRATORY FUME INHALATION DISORDER [None]
